FAERS Safety Report 6525524-2 (Version None)
Quarter: 2010Q1

REPORT INFORMATION
  Report Type: 
  Country: None (occurrence: None)
  Receive Date: 20100104
  Receipt Date: 20091221
  Transmission Date: 20100710
  Serious: Yes (Other)
  Sender: FDA-Public Use
  Company Number: US-JNJCH-2009032860

PATIENT
  Age: 37 Year
  Sex: Male
  Weight: 65.3 kg

DRUGS (1)
  1. LISTERINE ANTISEPTIC MOUTHWASH [Suspect]
     Indication: DENTAL DISORDER PROPHYLAXIS
     Dosage: TEXT:A TABLE SPOONFUL TWICE
     Route: 048
     Dates: start: 20091220, end: 20091220

REACTIONS (4)
  - CHOKING [None]
  - DYSPHAGIA [None]
  - PALLOR [None]
  - PRODUCT QUALITY ISSUE [None]
